FAERS Safety Report 25078670 (Version 1)
Quarter: 2025Q1

REPORT INFORMATION
  Report Type: Spontaneous
  Country: US (occurrence: US)
  Receive Date: 20250314
  Receipt Date: 20250314
  Transmission Date: 20250408
  Serious: No
  Sender: ALEXION PHARMACEUTICALS
  Company Number: US-AstraZeneca-CH-00825242A

PATIENT
  Weight: 117.93 kg

DRUGS (1)
  1. FASENRA [Suspect]
     Active Substance: BENRALIZUMAB
     Indication: Idiopathic pulmonary fibrosis
     Dosage: 30 MILLIGRAM, Q8W

REACTIONS (1)
  - Influenza [Not Recovered/Not Resolved]
